FAERS Safety Report 17713089 (Version 1)
Quarter: 2020Q2

REPORT INFORMATION
  Report Type: Spontaneous
  Country: US (occurrence: US)
  Receive Date: 20200427
  Receipt Date: 20200427
  Transmission Date: 20200714
  Serious: No
  Sender: FDA-Public Use
  Company Number: US-GILEAD-2020-0460493

PATIENT
  Sex: Male

DRUGS (3)
  1. PAXIL [PIROXICAM] [Concomitant]
     Active Substance: PIROXICAM
  2. NICOTINE. [Concomitant]
     Active Substance: NICOTINE
  3. SOFOSBUVIR;VELPATASVIR [Suspect]
     Active Substance: SOFOSBUVIR\VELPATASVIR
     Indication: CHRONIC HEPATITIS C
     Dosage: 1 DOSAGE FORM, QD
     Route: 048
     Dates: start: 20200331

REACTIONS (1)
  - Constipation [Unknown]
